FAERS Safety Report 6340511-5 (Version None)
Quarter: 2009Q3

REPORT INFORMATION
  Report Type: 
  Country: None (occurrence: None)
  Receive Date: 20090904
  Receipt Date: 20090901
  Transmission Date: 20100115
  Serious: Yes (Hospitalization)
  Sender: FDA-Public Use
  Company Number: JP-JNJFOC-20090406218

PATIENT
  Sex: Female

DRUGS (12)
  1. FENTANYL [Suspect]
     Route: 062
  2. FENTANYL [Suspect]
     Indication: DRUG USE FOR UNKNOWN INDICATION
     Route: 062
  3. LOXOPROFEN [Concomitant]
     Indication: ANALGESIA
     Route: 048
  4. SELBEX [Concomitant]
     Indication: GASTRITIS PROPHYLAXIS
     Route: 048
  5. MECOBALAMIN [Concomitant]
     Indication: NEUROPATHY PERIPHERAL
     Route: 048
  6. PARIET [Concomitant]
     Indication: GASTRITIS PROPHYLAXIS
     Route: 048
  7. KALLIDINOGENASE [Concomitant]
     Indication: NEUROPATHY PERIPHERAL
     Route: 048
  8. DOMPERIDONE [Concomitant]
     Indication: PROPHYLAXIS OF NAUSEA AND VOMITING
     Route: 048
  9. ALOSENN [Concomitant]
     Indication: CONSTIPATION PROPHYLAXIS
     Route: 048
  10. MOHRUS [Concomitant]
     Indication: ANALGESIA
     Dosage: AS NEEDED
     Route: 062
  11. HYALEIN [Concomitant]
     Indication: LACRIMATION DECREASED
     Route: 047
  12. SANCOBA [Concomitant]
     Indication: LACRIMATION DECREASED
     Route: 047

REACTIONS (1)
  - VERTIGO POSITIONAL [None]
